FAERS Safety Report 8336117-9 (Version None)
Quarter: 2012Q1

REPORT INFORMATION
  Report Type: 
  Country: None (occurrence: None)
  Receive Date: 20120329
  Receipt Date: 20091204
  Transmission Date: 20120608
  Serious: Yes (Other)
  Sender: FDA-Public Use
  Company Number: PHEH2009US17006

PATIENT
  Age: 87 Year
  Sex: Female
  Weight: 98 kg

DRUGS (5)
  1. METOPROLOL TARTRATE [Concomitant]
  2. EXELON [Suspect]
     Indication: DEMENTIA
     Dosage: TRANSDERMAL
     Route: 062
     Dates: start: 20091008, end: 20091015
  3. EVISTA [Concomitant]
  4. LISINOPRIL [Concomitant]
  5. ZOLOFT [Suspect]
     Indication: DEMENTIA
     Dosage: 12.5 MG DAILY, OAL
     Route: 048
     Dates: start: 20091008, end: 20091015

REACTIONS (1)
  - HALLUCINATION [None]
